FAERS Safety Report 24299790 (Version 5)
Quarter: 2024Q4

REPORT INFORMATION
  Report Type: Spontaneous
  Country: US (occurrence: US)
  Receive Date: 20240909
  Receipt Date: 20241204
  Transmission Date: 20250115
  Serious: Yes (Death, Hospitalization, Other)
  Sender: IOVANCE BIOTHERAPEUTICS MANUFACTURING LLC
  Company Number: US-IOVANCE BIOTHERAPEUTICS INC.-IOV2024000032

PATIENT

DRUGS (3)
  1. ALDESLEUKIN [Suspect]
     Active Substance: ALDESLEUKIN
     Indication: Product used for unknown indication
     Dosage: UNK
     Route: 065
     Dates: start: 20240826
  2. LIFILEUCEL [Suspect]
     Active Substance: LIFILEUCEL
     Indication: Product used for unknown indication
     Dosage: 7.5X 10*9 CELLS
     Route: 042
  3. LIFILEUCEL [Suspect]
     Active Substance: LIFILEUCEL
     Dosage: UNK
     Route: 065
     Dates: start: 20240826

REACTIONS (11)
  - Metastatic malignant melanoma [Fatal]
  - Seizure like phenomena [Unknown]
  - Mental disorder [Unknown]
  - Urine output decreased [Unknown]
  - Weight increased [Unknown]
  - Hypotension [Unknown]
  - Atrial fibrillation [Unknown]
  - Hypoxia [Unknown]
  - Cerebral haemorrhage [Unknown]
  - Respiratory distress [Not Recovered/Not Resolved]
  - Neutropenia [Unknown]

NARRATIVE: CASE EVENT DATE: 20240820
